FAERS Safety Report 6541392-7 (Version None)
Quarter: 2010Q1

REPORT INFORMATION
  Report Type: 
  Country: None (occurrence: None)
  Receive Date: 20100118
  Receipt Date: 20091225
  Transmission Date: 20100710
  Serious: Yes (Death)
  Sender: FDA-Public Use
  Company Number: US-BAYER-201011190GPV

PATIENT
  Age: 41 Year
  Sex: Female

DRUGS (10)
  1. ACETAMINOPHEN/ DIPHENHYDRAMINE [Suspect]
     Indication: COMPLETED SUICIDE
  2. CLONAZEPAM [Suspect]
     Indication: COMPLETED SUICIDE
  3. SALICYLATE [Suspect]
     Indication: COMPLETED SUICIDE
  4. OXYMORPHONE [Suspect]
     Indication: COMPLETED SUICIDE
  5. VENLAFAXINE [Suspect]
     Indication: COMPLETED SUICIDE
  6. QUETIAPINE [Suspect]
     Indication: COMPLETED SUICIDE
  7. ZOLPIDEM [Suspect]
     Indication: COMPLETED SUICIDE
  8. HYDROXYZINE [Suspect]
     Indication: COMPLETED SUICIDE
  9. ACETAMINOPHEN AND HYDROCODONE BITARTRATE [Concomitant]
     Indication: DRUG USE FOR UNKNOWN INDICATION
  10. CARISOPRODOL [Concomitant]
     Indication: DRUG USE FOR UNKNOWN INDICATION

REACTIONS (8)
  - CYANOSIS [None]
  - DRUG TOXICITY [None]
  - GASTROINTESTINAL NECROSIS [None]
  - HEPATIC NECROSIS [None]
  - PANCREATITIS [None]
  - PNEUMONIA ASPIRATION [None]
  - RENAL TUBULAR NECROSIS [None]
  - SMALL INTESTINAL HAEMORRHAGE [None]
